FAERS Safety Report 17469002 (Version 1)
Quarter: 2020Q1

REPORT INFORMATION
  Report Type: Spontaneous
  Country: US (occurrence: US)
  Receive Date: 20200215
  Receipt Date: 20200215
  Transmission Date: 20200409
  Serious: Yes (Hospitalization)
  Sender: FDA-Public Use
  Company Number: None

PATIENT
  Age: 59 Year
  Sex: Male
  Weight: 86.32 kg

DRUGS (4)
  1. DEXAMETHASONE. [Suspect]
     Active Substance: DEXAMETHASONE
     Dates: end: 20200124
  2. FOSAPREPITANT DIMEGLUMINE. [Suspect]
     Active Substance: FOSAPREPITANT DIMEGLUMINE
     Dates: end: 20200121
  3. OLANZAPINE. [Suspect]
     Active Substance: OLANZAPINE
     Dates: end: 20200124
  4. ALOXI [Suspect]
     Active Substance: PALONOSETRON HYDROCHLORIDE
     Dates: end: 20200121

REACTIONS (5)
  - Catheter site erythema [None]
  - Jugular vein thrombosis [None]
  - Subclavian vein thrombosis [None]
  - Catheter site pain [None]
  - Chest pain [None]

NARRATIVE: CASE EVENT DATE: 20200202
